FAERS Safety Report 5416415-9 (Version None)
Quarter: 2007Q3

REPORT INFORMATION
  Report Type: 
  Country: None (occurrence: None)
  Receive Date: 20070816
  Receipt Date: 20070202
  Transmission Date: 20080115
  Serious: No
  Sender: FDA-Public Use
  Company Number: US-KINGPHARMUSA00001-K200700129

PATIENT

DRUGS (4)
  1. BREVITAL SODIUM INJ [Suspect]
     Indication: ELECTROCARDIOGRAM
     Dosage: LESS THAN 100 MG, SINGLE
     Route: 013
     Dates: start: 20070202, end: 20070202
  2. SEROQUEL [Concomitant]
     Indication: DEPRESSION
     Route: 048
  3. REMERON [Concomitant]
     Indication: DEPRESSION
     Route: 048
  4. ANTIRETROVIRALS [Concomitant]
     Indication: HIV CARRIER

REACTIONS (2)
  - INCORRECT ROUTE OF DRUG ADMINISTRATION [None]
  - INJECTION SITE IRRITATION [None]
